FAERS Safety Report 17696219 (Version 1)
Quarter: 2020Q2

REPORT INFORMATION
  Report Type: Spontaneous
  Country: US (occurrence: US)
  Receive Date: 20200422
  Receipt Date: 20200422
  Transmission Date: 20200714
  Serious: Yes (Other)
  Sender: FDA-Public Use
  Company Number: US-NAPPMUNDI-USA-2005-0023396

PATIENT
  Sex: Male

DRUGS (2)
  1. OXYCONTIN [Suspect]
     Active Substance: OXYCODONE HYDROCHLORIDE
     Indication: PRODUCT USED FOR UNKNOWN INDICATION
     Route: 048
  2. BUTRANS [Suspect]
     Active Substance: BUPRENORPHINE
     Indication: PRODUCT USED FOR UNKNOWN INDICATION
     Route: 062

REACTIONS (9)
  - Drug withdrawal syndrome [Unknown]
  - Anxiety [Unknown]
  - Drug dependence [Unknown]
  - Product prescribing issue [Unknown]
  - Paranoia [Unknown]
  - Obsessive-compulsive disorder [Unknown]
  - Depression [Unknown]
  - Delusional disorder, unspecified type [Unknown]
  - Pain [Unknown]
